FAERS Safety Report 9706533 (Version 2)
Quarter: 2013Q4

REPORT INFORMATION
  Report Type: Report from Study
  Country: UG (occurrence: UG)
  Receive Date: 20131125
  Receipt Date: 20131125
  Transmission Date: 20140711
  Serious: Yes (Life-Threatening, Hospitalization, Disabling)
  Sender: FDA-Public Use
  Company Number: UG-009507513-1012USA03581

PATIENT
  Age: 27 Year
  Sex: Female

DRUGS (6)
  1. RALTEGRAVIR POTASSIUM [Suspect]
     Indication: HIV INFECTION
     Dates: start: 20100723
  2. ALUVIA [Suspect]
     Indication: HIV INFECTION
     Dosage: UNK
     Dates: start: 20100723
  3. FLUCONAZOLE [Concomitant]
     Dosage: 200 MG, QD
     Dates: start: 20100428
  4. FLUCONAZOLE [Concomitant]
     Dosage: 600 MG, QD
     Dates: start: 20110214
  5. SULFAMETHOXAZOLE (+) TRIMETHOPRIM [Concomitant]
     Dosage: UNK
     Dates: start: 20080501
  6. SEPTRIN [Concomitant]
     Dosage: UNK
     Dates: start: 20101112

REACTIONS (4)
  - Musculoskeletal stiffness [Not Recovered/Not Resolved]
  - Photophobia [Not Recovered/Not Resolved]
  - Meningitis cryptococcal [Recovered/Resolved]
  - Headache [Not Recovered/Not Resolved]
